APPROVED DRUG PRODUCT: CEFACLOR
Active Ingredient: CEFACLOR
Strength: EQ 125MG BASE/5ML
Dosage Form/Route: FOR SUSPENSION;ORAL
Application: A065412 | Product #001
Applicant: YUNG SHIN PHARMACEUTICAL INDUSTRIAL CO LTD
Approved: Feb 17, 2012 | RLD: No | RS: No | Type: RX